FAERS Safety Report 13030353 (Version 1)
Quarter: 2016Q4

REPORT INFORMATION
  Report Type: Report from Study
  Country: None (occurrence: US)
  Receive Date: 20161215
  Receipt Date: 20161215
  Transmission Date: 20170207
  Serious: No
  Sender: FDA-Public Use
  Company Number: US-BIOVITRUM-2015US0265

PATIENT
  Age: 63 Year
  Sex: Male
  Weight: 68.1 kg

DRUGS (19)
  1. AMIODARONE 4 CL [Concomitant]
     Route: 048
  2. APIRIN [Concomitant]
     Route: 048
  3. MELATONIN [Concomitant]
     Active Substance: MELATONIN
  4. BENADRYL [Concomitant]
     Active Substance: DIPHENHYDRAMINE HYDROCHLORIDE
  5. NYSTAIN [Concomitant]
     Active Substance: NYSTATIN
  6. COLCRYS [Concomitant]
     Active Substance: COLCHICINE
  7. KINERET [Suspect]
     Active Substance: ANAKINRA
     Route: 058
     Dates: start: 20150427, end: 20150430
  8. PREDNISONE. [Concomitant]
     Active Substance: PREDNISONE
     Route: 048
  9. KETOCONAZOLE. [Concomitant]
     Active Substance: KETOCONAZOLE
  10. METFORMIN [Concomitant]
     Active Substance: METFORMIN HYDROCHLORIDE
     Route: 048
  11. MULTI VITAMIN [Concomitant]
     Active Substance: VITAMINS
  12. SYNTHROID [Concomitant]
     Active Substance: LEVOTHYROXINE SODIUM
  13. TRAZODONE [Concomitant]
     Active Substance: TRAZODONE HYDROCHLORIDE
  14. FAMOTIDINE. [Concomitant]
     Active Substance: FAMOTIDINE
     Route: 048
  15. POTASSIUM CL [Concomitant]
     Active Substance: POTASSIUM CHLORIDE
     Dosage: 10 NEQ ER AS NEEDED WITH LASIX 20 MG.
  16. LASIX [Concomitant]
     Active Substance: FUROSEMIDE
     Dosage: 20 MG AS NEEDED WITH POTASSIUM CL 10 NEQ ER.
  17. XANAX [Concomitant]
     Active Substance: ALPRAZOLAM
  18. CITRI-CAL [Concomitant]
  19. VITAMIN D [Concomitant]
     Active Substance: CHOLECALCIFEROL

REACTIONS (2)
  - Injection site urticaria [Recovering/Resolving]
  - Injection site pain [Recovering/Resolving]

NARRATIVE: CASE EVENT DATE: 20150427
